FAERS Safety Report 8535903-X (Version None)
Quarter: 2012Q3

REPORT INFORMATION
  Report Type: 
  Country: None (occurrence: None)
  Receive Date: 20120725
  Receipt Date: 20120718
  Transmission Date: 20120928
  Serious: Yes (Hospitalization, Other)
  Sender: FDA-Public Use
  Company Number: PHHY2012BR062524

PATIENT
  Sex: Male
  Weight: 59 kg

DRUGS (5)
  1. PRELONE [Concomitant]
     Indication: BRONCHITIS
     Dosage: 1 DF, QD
  2. COMBIVENT [Concomitant]
     Indication: ASTHMA
     Dosage: 1 DF, QD
  3. FORMOTEROL FUMARATE [Suspect]
     Indication: DYSPNOEA
     Dosage: UNK UKN, BID
     Dates: end: 20120601
  4. SPIRIVA [Concomitant]
     Indication: DYSPNOEA
     Dosage: 1 DF, QD (FOR 3 YEARS AGO )
  5. DOMPERIDONE [Concomitant]
     Indication: BRONCHITIS
     Dosage: UNK UKN, UNK

REACTIONS (4)
  - LUNG DISORDER [None]
  - INFLUENZA [None]
  - INCREASED UPPER AIRWAY SECRETION [None]
  - DYSPNOEA [None]
